FAERS Safety Report 5353344-3 (Version None)
Quarter: 2007Q2

REPORT INFORMATION
  Report Type: 
  Country: None (occurrence: None)
  Receive Date: 20070518
  Receipt Date: 20070314
  Transmission Date: 20071010
  Serious: No
  Sender: FDA-Public Use
  Company Number: TPA2007A00609

PATIENT
  Age: 67 Year
  Sex: Female

DRUGS (1)
  1. ROZEREM [Suspect]
     Dosage: 8 MG, HS, PER ORAL
     Route: 048

REACTIONS (3)
  - EMOTIONAL DISORDER [None]
  - IRRITABILITY [None]
  - MOOD ALTERED [None]
